FAERS Safety Report 17784143 (Version 2)
Quarter: 2020Q2

REPORT INFORMATION
  Report Type: Report from Study
  Country: CO (occurrence: CO)
  Receive Date: 20200514
  Receipt Date: 20200528
  Transmission Date: 20200714
  Serious: Yes (Hospitalization, Other)
  Sender: FDA-Public Use
  Company Number: CO-ASTELLAS-2020US016473

PATIENT
  Age: 81 Year
  Sex: Male

DRUGS (3)
  1. TACROLIMUS. [Suspect]
     Active Substance: TACROLIMUS
     Indication: RENAL TRANSPLANT
     Dosage: 4 MG, ONCE DAILY (4 CAPSULES OF 1 MG)
     Route: 048
     Dates: start: 20131101
  2. MYCOPHENOLATE [Concomitant]
     Active Substance: MYCOPHENOLIC ACID
     Indication: PRODUCT USED FOR UNKNOWN INDICATION
     Dosage: 2 CAPSULES OF 360 MG IN THE MORNING AND 2 CAPSULES OF 360 MG AT NIGHT, OTHER
     Route: 048
     Dates: start: 2019, end: 202001
  3. MYCOPHENOLATE [Concomitant]
     Active Substance: MYCOPHENOLIC ACID
     Route: 048
     Dates: start: 202001

REACTIONS (4)
  - Renal failure [Recovered/Resolved]
  - Urinary retention [Recovered/Resolved]
  - Kidney transplant rejection [Recovered/Resolved]
  - Nephrolithiasis [Recovered/Resolved]

NARRATIVE: CASE EVENT DATE: 201912
